FAERS Safety Report 9532054 (Version 2)
Quarter: 2013Q3

REPORT INFORMATION
  Report Type: Spontaneous
  Country: US (occurrence: US)
  Receive Date: 20130918
  Receipt Date: 20130924
  Transmission Date: 20140515
  Serious: Yes (Hospitalization, Other)
  Sender: FDA-Public Use
  Company Number: US-BAXTER-2013BAX035904

PATIENT
  Age: 52 Year
  Sex: Female

DRUGS (1)
  1. DIANEAL LOW CALCIUM [Suspect]
     Indication: PERITONEAL DIALYSIS
     Route: 033
     Dates: start: 20090427

REACTIONS (10)
  - Postoperative wound complication [Unknown]
  - Calciphylaxis [Unknown]
  - Neoplasm [Not Recovered/Not Resolved]
  - Blood glucose decreased [Unknown]
  - Peritonitis [Recovered/Resolved]
  - Nausea [Not Recovered/Not Resolved]
  - Vomiting [Not Recovered/Not Resolved]
  - Hypokalaemia [Unknown]
  - Diarrhoea [Unknown]
  - Peritoneal dialysis complication [Unknown]
